FAERS Safety Report 7903161-2 (Version None)
Quarter: 2011Q4

REPORT INFORMATION
  Report Type: 
  Country: None (occurrence: None)
  Receive Date: 20111109
  Receipt Date: 20111010
  Transmission Date: 20120403
  Serious: No
  Sender: FDA-Public Use
  Company Number: US-GLAXOSMITHKLINE-A0949163A

PATIENT
  Age: 56 Year
  Sex: Female

DRUGS (1)
  1. HYCAMTIN [Suspect]
     Indication: LUNG NEOPLASM MALIGNANT
     Route: 048

REACTIONS (1)
  - DRUG INEFFECTIVE [None]
